FAERS Safety Report 7753385-2 (Version None)
Quarter: 2011Q3

REPORT INFORMATION
  Report Type: 
  Country: None (occurrence: None)
  Receive Date: 20110915
  Receipt Date: 20110912
  Transmission Date: 20111222
  Serious: Yes (Death, Hospitalization)
  Sender: FDA-Public Use
  Company Number: PHHY2011HK80866

PATIENT
  Age: 37 Year
  Sex: Female

DRUGS (2)
  1. CHLOROQUINE PHOSPHATE [Suspect]
     Dosage: 25 DF, UNK
  2. HYDROXYCHLOROQUINE [Suspect]
     Dosage: 30 DF, UNK

REACTIONS (9)
  - SINUS TACHYCARDIA [None]
  - DEATH [None]
  - CARDIAC ARREST [None]
  - SUICIDE ATTEMPT [None]
  - ELECTROCARDIOGRAM QRS COMPLEX PROLONGED [None]
  - TORSADE DE POINTES [None]
  - BLOOD PRESSURE DECREASED [None]
  - HYPOKALAEMIA [None]
  - OVERDOSE [None]
